FAERS Safety Report 4351774-X (Version None)
Quarter: 2004Q2

REPORT INFORMATION
  Report Type: 
  Country: None (occurrence: None)
  Receive Date: 20040503
  Receipt Date: 20040419
  Transmission Date: 20050107
  Serious: Yes (Hospitalization)
  Sender: FDA-Public Use
  Company Number: ES-GLAXOSMITHKLINE-B0330723A

PATIENT
  Sex: Female

DRUGS (2)
  1. AVANDIA [Suspect]
     Dates: start: 20031201
  2. METFORMIN HCL [Concomitant]

REACTIONS (1)
  - ANAEMIA [None]
